FAERS Safety Report 18079195 (Version 3)
Quarter: 2020Q4

REPORT INFORMATION
  Report Type: Spontaneous
  Country: FR (occurrence: FR)
  Receive Date: 20200728
  Receipt Date: 20201120
  Transmission Date: 20210113
  Serious: Yes (Death)
  Sender: FDA-Public Use
  Company Number: FR-BAYER-2020-151932

PATIENT
  Age: 19 Year
  Sex: Male

DRUGS (1)
  1. VITRAKVI [Suspect]
     Active Substance: LAROTRECTINIB
     Indication: ASTROCYTOMA
     Dosage: UNK
     Dates: start: 20190923, end: 20200706

REACTIONS (1)
  - Astrocytoma [Fatal]

NARRATIVE: CASE EVENT DATE: 20200529
